FAERS Safety Report 5371202-5 (Version None)
Quarter: 2007Q2

REPORT INFORMATION
  Report Type: 
  Country: None (occurrence: None)
  Receive Date: 20070622
  Receipt Date: 20070517
  Transmission Date: 20071010
  Serious: Yes (Other)
  Sender: FDA-Public Use
  Company Number: 6033495

PATIENT
  Age: 35 Year
  Sex: Female

DRUGS (1)
  1. METFORMIN [Suspect]
     Indication: POLYCYSTIC OVARIES
     Dosage: 2 GM (1 GM, 2 IN 1 D) ORAL
     Route: 048

REACTIONS (1)
  - ALOPECIA [None]
